FAERS Safety Report 23315361 (Version 1)
Quarter: 2023Q4

REPORT INFORMATION
  Report Type: Spontaneous
  Country: US (occurrence: US)
  Receive Date: 20231219
  Receipt Date: 20231219
  Transmission Date: 20240110
  Serious: Yes (Other)
  Sender: FDA-Public Use
  Company Number: US-ORG100016242-2022002956

PATIENT

DRUGS (2)
  1. EXPAREL [Suspect]
     Active Substance: BUPIVACAINE
     Indication: Spinal anaesthesia
     Dosage: NOT PROVIDED
  2. BUPIVACAINE [Suspect]
     Active Substance: BUPIVACAINE
     Indication: Spinal anaesthesia
     Dosage: NOT PROVIDED

REACTIONS (1)
  - Local anaesthetic systemic toxicity [Recovered/Resolved]
